FAERS Safety Report 5020722-1 (Version None)
Quarter: 2006Q2

REPORT INFORMATION
  Report Type: 
  Country: None (occurrence: None)
  Receive Date: 20060601
  Receipt Date: 20060518
  Transmission Date: 20061013
  Serious: Yes (Other)
  Sender: FDA-Public Use
  Company Number: PHBS2006JP07133

PATIENT
  Age: 24 Year
  Sex: Male

DRUGS (9)
  1. CARBAMAZEPINE [Suspect]
     Indication: SCHIZOPHRENIA
     Dosage: SEE IMAGE
     Route: 048
  2. CHLORPROMAZINE [Suspect]
     Indication: SCHIZOPHRENIA
     Dosage: SEE IMAGE
  3. HALOPERIDOL [Suspect]
     Indication: SCHIZOPHRENIA
     Dosage: SEE IMAGE
  4. LEVOPROME [Suspect]
     Indication: SCHIZOPHRENIA
     Dosage: SEE IMAGE
  5. PROMETHAZINE [Suspect]
     Indication: SCHIZOPHRENIA
     Dosage: SEE IMAGE
  6. BRIPERIDEN() [Suspect]
     Indication: SCHIZOPHRENIA
     Dosage: 2 MG/DAY
  7. SULTOPRIDE HYDROCHLORIDE(SULTOPRIDE HYDROCHLORIDE) [Suspect]
     Indication: SCHIZOPHRENIA
     Dosage: 1200 MG/DAY, ORAL
     Route: 048
  8. ZOTEPINE (ZOTEPINE) [Suspect]
     Indication: SCHIZOPHRENIA
     Dosage: 300 MG/DAY, ORAL
     Route: 048
  9. RISPERIDONE [Concomitant]

REACTIONS (8)
  - AKATHISIA [None]
  - BACK PAIN [None]
  - DELUSION [None]
  - FATIGUE [None]
  - HEADACHE [None]
  - HYPOKINESIA [None]
  - PLEUROTHOTONUS [None]
  - SOMNOLENCE [None]
